FAERS Safety Report 25413221 (Version 5)
Quarter: 2025Q3

REPORT INFORMATION
  Report Type: Report from Study
  Country: CO (occurrence: CO)
  Receive Date: 20250609
  Receipt Date: 20250902
  Transmission Date: 20251021
  Serious: Yes (Hospitalization)
  Sender: NOVARTIS
  Company Number: CO-002147023-NVSC2024CO231654

PATIENT
  Age: 50 Year
  Sex: Female
  Weight: 70 kg

DRUGS (5)
  1. COSENTYX [Suspect]
     Active Substance: SECUKINUMAB
     Indication: Psoriasis
     Dosage: 300 MG, QMO
     Route: 058
     Dates: start: 20230901
  2. COSENTYX [Suspect]
     Active Substance: SECUKINUMAB
     Route: 065
     Dates: start: 20241226
  3. COSENTYX [Suspect]
     Active Substance: SECUKINUMAB
     Dosage: 300 MG, QMO (JAN)
     Route: 058
  4. COSENTYX [Suspect]
     Active Substance: SECUKINUMAB
     Dosage: 300 MG, QMO (LAST APPLICATION)
     Route: 058
     Dates: start: 202504
  5. COSENTYX [Suspect]
     Active Substance: SECUKINUMAB
     Dosage: 300 MG, QMO
     Route: 058
     Dates: start: 202505

REACTIONS (17)
  - Onychomadesis [Not Recovered/Not Resolved]
  - Large intestine infection [Recovered/Resolved]
  - Psoriasis [Not Recovered/Not Resolved]
  - Weight decreased [Recovered/Resolved]
  - Illness [Recovering/Resolving]
  - Blood potassium decreased [Unknown]
  - Blood calcium decreased [Recovered/Resolved]
  - Blood bilirubin decreased [Recovered/Resolved]
  - Anaemia [Recovered/Resolved]
  - Pain in extremity [Not Recovered/Not Resolved]
  - Onychalgia [Unknown]
  - Body height decreased [Unknown]
  - Inflammation [Not Recovered/Not Resolved]
  - Influenza like illness [Recovering/Resolving]
  - Pyrexia [Recovered/Resolved]
  - Cough [Not Recovered/Not Resolved]
  - Product supply issue [Unknown]

NARRATIVE: CASE EVENT DATE: 20241001
